FAERS Safety Report 21677965 (Version 1)
Quarter: 2022Q4

REPORT INFORMATION
  Report Type: Spontaneous
  Country: FR (occurrence: FR)
  Receive Date: 20221203
  Receipt Date: 20221203
  Transmission Date: 20230113
  Serious: Yes (Hospitalization)
  Sender: FDA-Public Use
  Company Number: None

PATIENT
  Age: 86 Year
  Sex: Female
  Weight: 62 kg

DRUGS (14)
  1. SPIRONOLACTONE [Interacting]
     Active Substance: SPIRONOLACTONE
     Indication: Hypertension
     Dosage: UNIT DOSE : 12.5 MG , FREQUENCY TIME : 1 DAY , THERAPY START DATE : ASKU
     Dates: end: 202208
  2. VALSARTAN [Interacting]
     Active Substance: VALSARTAN
     Indication: Hypertension
     Dosage: UNIT DOSE : 160 MG , FREQUENCY TIME : 1 DAY , THERAPY START DATE : ASKU
     Dates: end: 202208
  3. BUMETANIDE [Interacting]
     Active Substance: BUMETANIDE
     Indication: Hypertrophic cardiomyopathy
     Dosage: UNIT DOSE : 5 MG , FREQUENCY TIME : 1 DAY , THERAPY START DATE : ASKU
  4. TAFAMIDIS [Concomitant]
     Active Substance: TAFAMIDIS
     Indication: Product used for unknown indication
     Dosage: UNIT DOSE : 61 MG , FREQUENCY TIME : 1 DAY , THERAPY START DATE : ASKU
  5. KARDEGIC [Concomitant]
     Active Substance: ASPIRIN DL-LYSINE
     Indication: Product used for unknown indication
     Dosage: POWDER FOR ORAL SOLUTION IN SACHET-DOSE , FORM STRENGTH : 75 MG , UNIT DOSE : 1 DF , FREQUENCY TIME
  6. ASCORBIC ACID\FERROUS CHLORIDE [Concomitant]
     Active Substance: ASCORBIC ACID\FERROUS CHLORIDE
     Indication: Product used for unknown indication
     Dosage: UNIT DOSE : 66 MG   , FREQUENCY TIME : 1 DAY   , THERAPY START DATE : ASKU
  7. PREDNISONE [Concomitant]
     Active Substance: PREDNISONE
     Indication: Product used for unknown indication
     Dosage: UNIT DOSE : 5 MG   , FREQUENCY TIME : 1 DAY   , THERAPY START DATE : ASKU
  8. POLYETHYLENE GLYCOLS [Concomitant]
     Active Substance: POLYETHYLENE GLYCOLS
     Indication: Product used for unknown indication
     Dosage: MACROGOL (STEARATE DE) , UNIT DOSE : 11.8 GRAM   , FREQUENCY TIME : 1 DAY   , THERAPY START DATE : A
  9. ACETAMINOPHEN [Concomitant]
     Active Substance: ACETAMINOPHEN
     Indication: Product used for unknown indication
     Dosage: UNIT DOSE : 1 GRAM   , FREQUENCY TIME : 1 DAY   , THERAPY START DATE : ASKU
  10. EZETIMIBE [Concomitant]
     Active Substance: EZETIMIBE
     Indication: Product used for unknown indication
     Dosage: UNIT DOSE : 10 MG , FREQUENCY TIME : 1 DAY , THERAPY START DATE : ASKU
  11. HYDROXYCHLOROQUINE SULFATE [Concomitant]
     Active Substance: HYDROXYCHLOROQUINE SULFATE
     Indication: Product used for unknown indication
     Dosage: HYDROXYCHLOROQUINE (SULFATE D^) , UNIT DOSE : 400 MG , FREQUENCY TIME : 1 DAY , THERAPY START DATE :
  12. VESICARE [Concomitant]
     Active Substance: SOLIFENACIN SUCCINATE
     Indication: Product used for unknown indication
     Dosage: FORM STRENGTH : 5 MG , UNIT DOSE : 5 MG  , FREQUENCY TIME : 1 DAY , THERAPY START DATE : ASKU
  13. CARBAMAZEPINE [Concomitant]
     Active Substance: CARBAMAZEPINE
     Indication: Product used for unknown indication
     Dosage: UNIT DOSE : 500 MG , FREQUENCY TIME : 1 DAY  , THERAPY START DATE : ASKU
  14. ESOMEPRAZOLE [Concomitant]
     Active Substance: ESOMEPRAZOLE
     Indication: Product used for unknown indication
     Dosage: UNIT DOSE : 40 MG  , FREQUENCY TIME : 1 DAY  , THERAPY START DATE : ASKU

REACTIONS (2)
  - Acute kidney injury [Recovering/Resolving]
  - Drug interaction [Recovered/Resolved]

NARRATIVE: CASE EVENT DATE: 20220802
